FAERS Safety Report 7965217-8 (Version None)
Quarter: 2011Q4

REPORT INFORMATION
  Report Type: 
  Country: None (occurrence: None)
  Receive Date: 20111208
  Receipt Date: 20111128
  Transmission Date: 20120403
  Serious: No
  Sender: FDA-Public Use
  Company Number: US-BAYER-2011-115524

PATIENT
  Sex: Female

DRUGS (4)
  1. ACETYLSALICYLIC ACID SRT [Concomitant]
  2. ALEVE (CAPLET) [Suspect]
     Indication: ANALGESIC THERAPY
     Dosage: 2 TAB ONCE DAILY
     Route: 048
     Dates: start: 20110101
  3. ANTIHYPERTENSIVES [Concomitant]
  4. BLOOD THINNER MEDICATION [Concomitant]

REACTIONS (1)
  - NO ADVERSE EVENT [None]
